FAERS Safety Report 7084287-5 (Version None)
Quarter: 2010Q4

REPORT INFORMATION
  Report Type: 
  Country: None (occurrence: None)
  Receive Date: 20101104
  Receipt Date: 20101025
  Transmission Date: 20110411
  Serious: Yes (Other)
  Sender: FDA-Public Use
  Company Number: BR-PFIZER INC-2010135853

PATIENT
  Sex: Male

DRUGS (2)
  1. GENOTROPIN [Suspect]
     Indication: OFF LABEL USE
     Dosage: UNK
     Route: 058
     Dates: start: 20100101
  2. GENOTROPIN [Suspect]
     Indication: BODY FAT DISORDER

REACTIONS (2)
  - HAND FRACTURE [None]
  - MEDICAL DEVICE COMPLICATION [None]
